FAERS Safety Report 8600951-8 (Version None)
Quarter: 2012Q3

REPORT INFORMATION
  Report Type: 
  Country: None (occurrence: None)
  Receive Date: 20120805
  Receipt Date: 20120724
  Transmission Date: 20120928
  Serious: Yes (Hospitalization, Other)
  Sender: FDA-Public Use
  Company Number: VAL_00803_2012

PATIENT
  Age: 24 Month
  Sex: Male

DRUGS (1)
  1. CARBAMAZEPINE [Suspect]
     Indication: GRAND MAL CONVULSION
     Dosage: ([DAILY DOSE OF 10 MG KG)

REACTIONS (6)
  - APLASIA PURE RED CELL [None]
  - RESPIRATORY TRACT INFECTION [None]
  - ANAEMIA [None]
  - PNEUMONIA [None]
  - HAEMATOTOXICITY [None]
  - HEPATITIS B ANTIBODY POSITIVE [None]
